FAERS Safety Report 5479209-4 (Version None)
Quarter: 2007Q4

REPORT INFORMATION
  Report Type: 
  Country: None (occurrence: None)
  Receive Date: 20071008
  Receipt Date: 20070927
  Transmission Date: 20080405
  Serious: Yes (Other)
  Sender: FDA-Public Use
  Company Number: PHHO2007MX16074

PATIENT
  Age: 7 Year
  Sex: Male

DRUGS (4)
  1. TEGRETOL [Suspect]
     Dosage: 200 MG, QD
     Dates: start: 20070401, end: 20070914
  2. RITALIN [Concomitant]
  3. RISPERDAL [Concomitant]
  4. SALBUTAMOL [Concomitant]

REACTIONS (4)
  - DRUG LEVEL INCREASED [None]
  - LIVER DISORDER [None]
  - SLEEP DISORDER [None]
  - VISUAL ACUITY REDUCED [None]
